FAERS Safety Report 19900674 (Version 1)
Quarter: 2021Q3

REPORT INFORMATION
  Report Type: Spontaneous
  Country: JP (occurrence: JP)
  Receive Date: 20210930
  Receipt Date: 20210930
  Transmission Date: 20211014
  Serious: Yes (Death)
  Sender: FDA-Public Use
  Company Number: JP-BAXTER-2021BAX030889

PATIENT
  Age: 8 Decade
  Sex: Male

DRUGS (4)
  1. BAKTAR [Suspect]
     Active Substance: SULFAMETHOXAZOLE\TRIMETHOPRIM
     Indication: PNEUMOCYSTIS JIROVECII PNEUMONIA
     Route: 048
     Dates: start: 20210611, end: 20210625
  2. ENDOXAN LYOPHILISAT [Suspect]
     Active Substance: CYCLOPHOSPHAMIDE
     Route: 065
     Dates: start: 20210626, end: 20210626
  3. ENDOXAN LYOPHILISAT [Suspect]
     Active Substance: CYCLOPHOSPHAMIDE
     Indication: INTERSTITIAL LUNG DISEASE
     Route: 065
     Dates: start: 20210709, end: 20210709
  4. ENDOXAN LYOPHILISAT [Suspect]
     Active Substance: CYCLOPHOSPHAMIDE
     Route: 065
     Dates: start: 20210723, end: 20210723

REACTIONS (2)
  - Interstitial lung disease [Fatal]
  - Drug-induced liver injury [Unknown]
